FAERS Safety Report 9029883 (Version 1)
Quarter: 2013Q1

REPORT INFORMATION
  Report Type: Spontaneous
  Country: US (occurrence: US)
  Receive Date: 20130124
  Receipt Date: 20130124
  Transmission Date: 20140127
  Serious: No
  Sender: FDA-Public Use
  Company Number: US-ASTRAZENECA-2013SE03570

PATIENT
  Age: 81 Year
  Sex: Female
  Weight: 68.5 kg

DRUGS (3)
  1. FASLODEX [Suspect]
     Indication: BREAST CANCER
     Route: 030
     Dates: start: 2012, end: 201207
  2. FASLODEX [Suspect]
     Indication: BREAST CANCER
     Route: 030
     Dates: start: 201208
  3. DIOVAN HCT [Concomitant]
     Indication: BLOOD PRESSURE

REACTIONS (3)
  - Muscle spasms [Unknown]
  - Weight increased [Unknown]
  - Hunger [Unknown]
